FAERS Safety Report 7962361-6 (Version None)
Quarter: 2011Q4

REPORT INFORMATION
  Report Type: 
  Country: None (occurrence: None)
  Receive Date: 20111206
  Receipt Date: 20111121
  Transmission Date: 20120403
  Serious: Yes (Death, Hospitalization)
  Sender: FDA-Public Use
  Company Number: AUR-APL-2011-05944

PATIENT
  Age: 39 Year
  Sex: Male

DRUGS (1)
  1. METFORMIN HCL [Suspect]
     Indication: SUICIDE ATTEMPT
     Dosage: (90 GM),ORAL
     Route: 048

REACTIONS (6)
  - LACTIC ACIDOSIS [None]
  - TREATMENT FAILURE [None]
  - SUICIDE ATTEMPT [None]
  - DIALYSIS [None]
  - OVERDOSE [None]
  - SHOCK [None]
